FAERS Safety Report 24833504 (Version 1)
Quarter: 2025Q1

REPORT INFORMATION
  Report Type: Spontaneous
  Country: US (occurrence: US)
  Receive Date: 20250112
  Receipt Date: 20250112
  Transmission Date: 20250409
  Serious: No
  Sender: SANOFI AVENTIS
  Company Number: US-SA-2025SA008347

PATIENT
  Age: 23 Year
  Sex: Female
  Weight: 48.08 kg

DRUGS (2)
  1. DUPIXENT [Suspect]
     Active Substance: DUPILUMAB
     Indication: Dermatitis atopic
     Dosage: 300 MG, QOW
     Route: 058
  2. ADBRY [Suspect]
     Active Substance: TRALOKINUMAB-LDRM
     Dates: end: 202501

REACTIONS (4)
  - Eye discharge [Unknown]
  - Ocular hyperaemia [Unknown]
  - Eye swelling [Unknown]
  - Infection [Unknown]
